FAERS Safety Report 8587842 (Version 2)
Quarter: 2012Q4

REPORT INFORMATION
  Report Type: 
  Country: US (occurrence: US)
  Receive Date: 20120531
  Receipt Date: 20120925
  Transmission Date: 20130627
  Serious: Yes (Other)
  Sender: FDA-Public Use
  Company Number: US-ASTRAZENECA-2012SE33481

PATIENT
  Age: 26587 Day
  Sex: Female

DRUGS (14)
  1. NEXIUM [Suspect]
     Indication: GASTROOESOPHAGEAL REFLUX DISEASE
     Route: 048
     Dates: start: 2007, end: 2012
  2. NEXIUM [Suspect]
     Indication: GASTROOESOPHAGEAL REFLUX DISEASE
     Route: 048
     Dates: start: 20091218
  3. SYNTHROID [Concomitant]
     Dosage: 125 TO 175 MCG
     Dates: start: 20090202
  4. LOVAZA [Concomitant]
     Dates: start: 20090305
  5. HYDROCHLOROTHIAZIDE [Concomitant]
     Dates: start: 20090306
  6. LEVAQUIN [Concomitant]
     Dates: start: 20090511
  7. AZITHROMYCIN [Concomitant]
     Dates: start: 20090814
  8. PANTOPRAZOLE SOD SR [Concomitant]
     Dates: start: 20090820
  9. METRONIDAZOLE [Concomitant]
     Dates: start: 20090820
  10. OXYCODONE APAP [Concomitant]
     Dosage: 5-325 MG
     Dates: start: 20100215
  11. INDOMETHACIN [Concomitant]
     Dates: start: 20100215
  12. CYCLOBENZAPRINE [Concomitant]
     Dates: start: 20100219
  13. COLCHICINE [Concomitant]
     Dates: start: 20100219
  14. BENICAR [Concomitant]
     Dates: start: 20101129

REACTIONS (1)
  - Wrist fracture [Unknown]
